FAERS Safety Report 8157507-3 (Version None)
Quarter: 2012Q1

REPORT INFORMATION
  Report Type: 
  Country: None (occurrence: None)
  Receive Date: 20120222
  Receipt Date: 20120210
  Transmission Date: 20120608
  Serious: Yes (Life-Threatening, Hospitalization)
  Sender: FDA-Public Use
  Company Number: FR-PFIZER INC-2012045523

PATIENT
  Age: 67 Year
  Sex: Female

DRUGS (6)
  1. ONDANSETRON [Suspect]
     Indication: PREMEDICATION
     Dosage: 8 MG, 30 MINUTES
     Route: 042
     Dates: start: 20120102, end: 20120102
  2. ZANTAC [Concomitant]
     Dosage: UNK
     Dates: start: 20120102
  3. SOLU-MEDROL [Concomitant]
     Dosage: UNK
     Route: 042
     Dates: start: 20120102
  4. POLARAMINE [Suspect]
     Indication: PREMEDICATION
     Dosage: 5 MG, 30 MINUTES
     Route: 042
     Dates: start: 20120102, end: 20120102
  5. CARBOPLATIN [Suspect]
     Indication: OVARIAN EPITHELIAL CANCER
     Dosage: 260 MG, 15 MINUTES
     Route: 042
     Dates: start: 20120102, end: 20120102
  6. PACLITAXEL [Suspect]
     Indication: OVARIAN EPITHELIAL CANCER
     Dosage: 222 MG, 3 HOURS
     Route: 042
     Dates: start: 20120102, end: 20120102

REACTIONS (4)
  - TACHYCARDIA [None]
  - BRONCHOSPASM [None]
  - HYPERTENSION [None]
  - DYSPNOEA [None]
